FAERS Safety Report 9057659 (Version 1)
Quarter: 2013Q1

REPORT INFORMATION
  Report Type: Spontaneous
  Country: US (occurrence: None)
  Receive Date: 20130204
  Receipt Date: 20130204
  Transmission Date: 20140127
  Serious: Yes (Other)
  Sender: FDA-Public Use
  Company Number: None

PATIENT
  Age: 37 Year
  Sex: Female

DRUGS (2)
  1. MONTELUKAST SODIUM [Suspect]
     Indication: ASTHMA
     Dosage: 10MG QHS QD
     Dates: start: 20120901, end: 20121001
  2. MONTELUKAST SODIUM [Suspect]
     Indication: MULTIPLE ALLERGIES
     Dosage: 10MG QHS QD
     Dates: start: 20120901, end: 20121001

REACTIONS (4)
  - Hypersensitivity [None]
  - Asthma [None]
  - Drug effect decreased [None]
  - Product quality issue [None]
